FAERS Safety Report 11022150 (Version 1)
Quarter: 2015Q2

REPORT INFORMATION
  Report Type: Spontaneous
  Country: US (occurrence: US)
  Receive Date: 20150413
  Receipt Date: 20150413
  Transmission Date: 20150821
  Serious: Yes (Other)
  Sender: FDA-Public Use
  Company Number: US-GLAXOSMITHKLINE-US2015GSK048811

PATIENT
  Age: 14 Year
  Sex: Male

DRUGS (3)
  1. FLUTICASONE [Suspect]
     Active Substance: FLUTICASONE\FLUTICASONE PROPIONATE
     Indication: ASTHMA
     Dosage: 200 MG, TID
     Route: 065
  2. SALMETEROL [Suspect]
     Active Substance: SALMETEROL
     Indication: ASTHMA
  3. ALBUTEROL. [Suspect]
     Active Substance: ALBUTEROL
     Indication: ASTHMA

REACTIONS (7)
  - Hyperreflexia [Unknown]
  - Overdose [Unknown]
  - Tachycardia [Unknown]
  - Asthma [Unknown]
  - Anxiety [Unknown]
  - Hypertension [Unknown]
  - Cerebellar syndrome [Unknown]
